FAERS Safety Report 17223989 (Version 1)
Quarter: 2020Q1

REPORT INFORMATION
  Report Type: Report from Study
  Country: DE (occurrence: DE)
  Receive Date: 20200102
  Receipt Date: 20200102
  Transmission Date: 20200409
  Serious: Yes (Death, Hospitalization)
  Sender: FDA-Public Use
  Company Number: DE-TEVA-2019-DE-1160178

PATIENT
  Age: 29 Year
  Sex: Female
  Weight: 31 kg

DRUGS (5)
  1. LEVETIRACETAM. [Concomitant]
     Active Substance: LEVETIRACETAM
     Indication: PRODUCT USED FOR UNKNOWN INDICATION
     Dosage: 1000 MILLIGRAM, QD (500 MG-0-500 MG)
     Route: 065
     Dates: start: 2012
  2. FRISIUM [Suspect]
     Active Substance: CLOBAZAM
     Indication: EPILEPSY
     Dosage: 10 MILLIGRAM, QD (5 MG-0-5MG)
     Route: 065
     Dates: start: 20190301
  3. EPIDIOLEX [Suspect]
     Active Substance: CANNABIDIOL
     Indication: EPILEPSY
     Dosage: 6.45 MG/KG/DAY, 200 MILLIGRAM, QD (100 MG -0-100 MG)
     Route: 048
     Dates: start: 20190327
  4. LACOSAMIDE. [Concomitant]
     Active Substance: LACOSAMIDE
     Indication: PRODUCT USED FOR UNKNOWN INDICATION
     Dosage: 200 MILLIGRAM, QD (100 MG-0-100 MG)
     Route: 065
     Dates: start: 2014
  5. VALPROIC ACID. [Suspect]
     Active Substance: VALPROIC ACID
     Indication: EPILEPSY
     Dosage: 1800 MILLIGRAM, QD (600 MG-600 MG-600 MG)
     Route: 065
     Dates: start: 2014

REACTIONS (3)
  - Respiratory tract infection [Unknown]
  - Death [Fatal]
  - Pyrexia [Unknown]

NARRATIVE: CASE EVENT DATE: 201909
